FAERS Safety Report 13861726 (Version 3)
Quarter: 2018Q2

REPORT INFORMATION
  Report Type: Spontaneous
  Country: AT (occurrence: AT)
  Receive Date: 20170811
  Receipt Date: 20180420
  Transmission Date: 20180711
  Serious: Yes (Other)
  Sender: FDA-Public Use
  Company Number: AT-B.I. PHARMACEUTICALS,INC./RIDGEFIELD-2016-BI-42539BE

PATIENT
  Age: 57 Year
  Sex: Male

DRUGS (3)
  1. DOCETAXEL. [Concomitant]
     Active Substance: DOCETAXEL
     Indication: LUNG ADENOCARCINOMA
     Route: 042
     Dates: start: 201508
  2. VARGATEF [Suspect]
     Active Substance: NINTEDANIB
     Indication: NON-SMALL CELL LUNG CANCER
     Route: 065
     Dates: start: 201508
  3. VARGATEF [Suspect]
     Active Substance: NINTEDANIB
     Route: 065
     Dates: end: 20160501

REACTIONS (6)
  - Nail disorder [Unknown]
  - Malignant neoplasm progression [Unknown]
  - Alopecia [Unknown]
  - Polyneuropathy [Unknown]
  - Diarrhoea [Unknown]
  - Nausea [Unknown]

NARRATIVE: CASE EVENT DATE: 201508
